FAERS Safety Report 8351390-9 (Version None)
Quarter: 2012Q2

REPORT INFORMATION
  Report Type: 
  Country: None (occurrence: None)
  Receive Date: 20120510
  Receipt Date: 20120501
  Transmission Date: 20120825
  Serious: Yes (Hospitalization, Disabling)
  Sender: FDA-Public Use
  Company Number: US-MERCK-1201USA00812

PATIENT
  Age: 66 Year
  Sex: Female

DRUGS (7)
  1. SOMINEX (DIPHENHYDRAMINE HYDROCHLORIDE) [Concomitant]
     Indication: HYPERSENSITIVITY
     Route: 065
  2. VITAMIN D (UNSPECIFIED) [Concomitant]
     Route: 048
     Dates: start: 20010101
  3. FOSAMAX [Suspect]
     Indication: OSTEOPOROSIS
     Route: 048
     Dates: start: 20080201, end: 20091201
  4. CALCIUM (UNSPECIFIED) [Concomitant]
     Route: 048
     Dates: start: 19880101
  5. MELATONIN [Concomitant]
     Route: 048
     Dates: start: 20010101
  6. OMEPRAZOLE [Concomitant]
     Route: 065
  7. BONIVA [Suspect]
     Route: 065

REACTIONS (18)
  - BURSITIS [None]
  - BLOOD CORTISOL INCREASED [None]
  - BONE FRAGMENTATION [None]
  - PLEURAL EFFUSION [None]
  - PNEUMONIA [None]
  - INTESTINAL OBSTRUCTION [None]
  - CARDIAC DISORDER [None]
  - PULMONARY OEDEMA [None]
  - DIARRHOEA [None]
  - FEMUR FRACTURE [None]
  - HIATUS HERNIA [None]
  - DYSPNOEA [None]
  - LYMPHADENOPATHY MEDIASTINAL [None]
  - SPINAL COMPRESSION FRACTURE [None]
  - THYROID DISORDER [None]
  - ARTHRITIS [None]
  - HYPOXIA [None]
  - FALL [None]
